FAERS Safety Report 11739097 (Version 1)
Quarter: 2015Q4

REPORT INFORMATION
  Report Type: Spontaneous
  Country: US (occurrence: US)
  Receive Date: 20151113
  Receipt Date: 20151113
  Transmission Date: 20160304
  Serious: No
  Sender: FDA-Public Use
  Company Number: US-ROCHE-1467868

PATIENT
  Age: 36 Year
  Sex: Female

DRUGS (11)
  1. DOXORUBICIN [Concomitant]
     Active Substance: DOXORUBICIN
  2. EPIRUBICIN [Concomitant]
     Active Substance: EPIRUBICIN
  3. RADIATION [Concomitant]
     Active Substance: RADIATION THERAPY
  4. TAMOXIFEN [Concomitant]
     Active Substance: TAMOXIFEN
  5. HERCEPTIN [Suspect]
     Active Substance: TRASTUZUMAB
     Indication: HER-2 POSITIVE BREAST CANCER
     Route: 065
  6. PERJETA [Suspect]
     Active Substance: PERTUZUMAB
     Indication: HER-2 POSITIVE BREAST CANCER
     Route: 065
  7. CYTOXAN [Concomitant]
     Active Substance: CYCLOPHOSPHAMIDE
  8. ZOMETA [Concomitant]
     Active Substance: ZOLEDRONIC ACID
  9. KADCYLA [Suspect]
     Active Substance: ADO-TRASTUZUMAB EMTANSINE
     Indication: HER-2 POSITIVE BREAST CANCER
     Route: 065
  10. TAXOL [Concomitant]
     Active Substance: PACLITAXEL
  11. TYKERB [Concomitant]
     Active Substance: LAPATINIB DITOSYLATE

REACTIONS (4)
  - Inflammation [Unknown]
  - Lymphangiosis carcinomatosa [Unknown]
  - Drug ineffective [Unknown]
  - Fatigue [Unknown]
